FAERS Safety Report 14295605 (Version 2)
Quarter: 2017Q4

REPORT INFORMATION
  Report Type: Spontaneous
  Country: US (occurrence: US)
  Receive Date: 20171218
  Receipt Date: 20171220
  Transmission Date: 20180321
  Serious: No
  Sender: FDA-Public Use
  Company Number: US-PFIZER INC-2017536178

PATIENT
  Age: 46 Year
  Sex: Female
  Weight: 69.39 kg

DRUGS (4)
  1. CHANTIX [Suspect]
     Active Substance: VARENICLINE TARTRATE
     Indication: SMOKING CESSATION THERAPY
     Dosage: 1 MG, 2X/DAY
     Route: 048
     Dates: start: 20171201
  2. CYTOMEL [Concomitant]
     Active Substance: LIOTHYRONINE SODIUM
     Indication: THYROID DISORDER
     Dosage: 5 UG, 1X/DAY
     Route: 048
  3. SYNTHROID [Concomitant]
     Active Substance: LEVOTHYROXINE SODIUM
     Indication: THYROID DISORDER
     Dosage: 100 UG, 1X/DAY
     Route: 048
  4. TYLENOL [Concomitant]
     Active Substance: ACETAMINOPHEN
     Indication: HEADACHE
     Dosage: 1000 MG, AS NEEDED
     Route: 048

REACTIONS (5)
  - Nasopharyngitis [Recovering/Resolving]
  - Rash generalised [Not Recovered/Not Resolved]
  - Nausea [Recovered/Resolved]
  - Rash pruritic [Unknown]
  - Urticaria [Unknown]

NARRATIVE: CASE EVENT DATE: 201712
